FAERS Safety Report 6998504-0 (Version None)
Quarter: 2010Q3

REPORT INFORMATION
  Report Type: 
  Country: None (occurrence: None)
  Receive Date: 20100920
  Receipt Date: 20100412
  Transmission Date: 20110219
  Serious: Yes (Hospitalization)
  Sender: FDA-Public Use
  Company Number: US-ASTRAZENECA-2009UW16414

PATIENT
  Age: 17780 Day
  Sex: Female

DRUGS (4)
  1. SEROQUEL [Suspect]
     Route: 048
     Dates: start: 20070501
  2. SEROQUEL [Suspect]
     Route: 048
     Dates: start: 20090101
  3. NORVASC [Concomitant]
  4. ZOLOFT [Concomitant]

REACTIONS (1)
  - DIABETIC KETOACIDOSIS [None]
